FAERS Safety Report 4268476-0 (Version None)
Quarter: 2004Q1

REPORT INFORMATION
  Report Type: 
  Country: None (occurrence: None)
  Receive Date: 20040112
  Receipt Date: 20031002
  Transmission Date: 20041129
  Serious: Yes (Hospitalization)
  Sender: FDA-Public Use
  Company Number: JP-ROCHE-348513

PATIENT
  Age: 59 Year
  Sex: Male
  Weight: 55 kg

DRUGS (7)
  1. CALCITRIOL [Suspect]
     Indication: HYPERPARATHYROIDISM SECONDARY
     Route: 042
     Dates: start: 20021022
  2. LASIX [Concomitant]
     Route: 048
  3. ALLOZYM [Concomitant]
     Indication: BLOOD URIC ACID INCREASED
     Route: 048
  4. KALIMATE [Concomitant]
     Indication: HYPERKALAEMIA
     Route: 048
     Dates: start: 20020114
  5. SORBITOL [Concomitant]
     Indication: CONSTIPATION
     Route: 048
     Dates: start: 20020114
  6. NORVASC [Concomitant]
     Route: 048
     Dates: start: 20030424
  7. CACO3 [Concomitant]
     Route: 048

REACTIONS (1)
  - TUBERCULOSIS [None]
